FAERS Safety Report 4836386-3 (Version None)
Quarter: 2005Q4

REPORT INFORMATION
  Report Type: 
  Country: None (occurrence: None)
  Receive Date: 20051123
  Receipt Date: 20051013
  Transmission Date: 20060501
  Serious: Yes (Other)
  Sender: FDA-Public Use
  Company Number: FR-ROCHE-421058

PATIENT
  Age: 33 Year
  Sex: Male
  Weight: 85 kg

DRUGS (4)
  1. PEGASYS [Suspect]
     Indication: HEPATITIS C
     Route: 058
     Dates: start: 20050317
  2. PEGASYS [Suspect]
     Route: 058
  3. COPEGUS [Concomitant]
     Indication: HEPATITIS C
     Route: 048
     Dates: start: 20050317
  4. DOLIPRANE [Concomitant]
     Route: 048
     Dates: start: 20050317

REACTIONS (6)
  - ALANINE AMINOTRANSFERASE INCREASED [None]
  - ANTINUCLEAR ANTIBODY POSITIVE [None]
  - GAMMA-GLUTAMYLTRANSFERASE INCREASED [None]
  - HEPATIC STEATOSIS [None]
  - HEPATITIS ALCOHOLIC [None]
  - WEIGHT DECREASED [None]
